FAERS Safety Report 16416738 (Version 4)
Quarter: 2019Q3

REPORT INFORMATION
  Report Type: Spontaneous
  Country: BR (occurrence: BR)
  Receive Date: 20190611
  Receipt Date: 20190828
  Transmission Date: 20191004
  Serious: Yes (Hospitalization, Other)
  Sender: FDA-Public Use
  Company Number: BR-GLAXOSMITHKLINE-BR2019GSK102514

PATIENT
  Sex: Female
  Weight: 50 kg

DRUGS (1)
  1. BENLYSTA [Suspect]
     Active Substance: BELIMUMAB
     Indication: SYSTEMIC LUPUS ERYTHEMATOSUS
     Dosage: 498 MG, UNK
     Dates: start: 20190405

REACTIONS (7)
  - Systemic lupus erythematosus [Unknown]
  - Skin discolouration [Unknown]
  - Pulmonary oedema [Unknown]
  - Pyrexia [Unknown]
  - Malaise [Unknown]
  - Weight decreased [Unknown]
  - Inappropriate schedule of product administration [Unknown]
